FAERS Safety Report 20720656 (Version 1)
Quarter: 2022Q2

REPORT INFORMATION
  Report Type: Spontaneous
  Country: GB (occurrence: GB)
  Receive Date: 20220418
  Receipt Date: 20220418
  Transmission Date: 20220721
  Serious: Yes (Other)
  Sender: FDA-Public Use
  Company Number: None

PATIENT
  Age: 63 Year
  Sex: Male
  Weight: 82 kg

DRUGS (21)
  1. DOXYCYCLINE [Suspect]
     Active Substance: DOXYCYCLINE
     Indication: Infection
     Dosage: 200 MILLIGRAM, QD(TWO NOW THEN ONE DAILY)
     Route: 048
     Dates: start: 20220405, end: 20220405
  2. DOXYCYCLINE [Suspect]
     Active Substance: DOXYCYCLINE
     Dosage: 100 MILLIGRAM, QD(TWO NOW THEN ONE DAILY)
     Route: 048
     Dates: start: 20220406
  3. ADIZEM [Concomitant]
     Active Substance: DILTIAZEM HYDROCHLORIDE
     Dosage: 1 DOSAGE FORM, QD
     Dates: start: 20210324
  4. AMITRIPTYLINE HYDROCHLORIDE [Concomitant]
     Active Substance: AMITRIPTYLINE HYDROCHLORIDE
     Dosage: 2 DOSAGE FORM, QD(AT NIGHT)
     Dates: start: 20210324
  5. AMOXICILLIN [Concomitant]
     Active Substance: AMOXICILLIN
     Indication: Infection
     Dosage: 1 DOSAGE FORM, TID
     Dates: start: 20220407
  6. ATORVASTATIN [Concomitant]
     Active Substance: ATORVASTATIN
     Dosage: 1 DOSAGE FORM, QD
     Dates: start: 20220325, end: 20220325
  7. CARBOCYSTEINE [Concomitant]
     Active Substance: CARBOCYSTEINE
     Dosage: 2 DOSAGE FORM, TID
     Dates: start: 20210324
  8. COCODAMOL [Concomitant]
     Active Substance: ACETAMINOPHEN\CODEINE PHOSPHATE
     Dosage: 2 DOSAGE FORM, QID
     Route: 048
     Dates: start: 20220111
  9. FLUOXETINE [Concomitant]
     Active Substance: FLUOXETINE HYDROCHLORIDE
     Dosage: 2 DOSAGE FORM, QD(IN THE MORNING)
     Dates: start: 20210324
  10. BECLOMETHASONE\FORMOTEROL [Concomitant]
     Active Substance: BECLOMETHASONE\FORMOTEROL
     Dosage: 2 DOSAGE FORM, QD(PUFFS)
     Route: 055
     Dates: start: 20210324
  11. NITROGLYCERIN [Concomitant]
     Active Substance: NITROGLYCERIN
     Dosage: 1 DOSAGE FORM, PRN(UNDER THE TONGUE)
     Route: 050
     Dates: start: 20210324
  12. NITROGLYCERIN [Concomitant]
     Active Substance: NITROGLYCERIN
     Dosage: 1 DOSAGE FORM, PRN
     Route: 060
     Dates: start: 20210324
  13. MICONAZOLE [Concomitant]
     Active Substance: MICONAZOLE
     Dosage: 1 DOSAGE FORM, QID
     Dates: start: 20220324
  14. MIRTAZAPINE [Concomitant]
     Active Substance: MIRTAZAPINE
     Dosage: 1 DOSAGE FORM, QD
     Dates: start: 20210324
  15. NAPROXEN [Concomitant]
     Active Substance: NAPROXEN
     Dosage: 1 DOSAGE FORM, BID(WITH FOOD)
     Route: 048
     Dates: start: 20220308, end: 20220322
  16. OMEPRAZOLE [Concomitant]
     Active Substance: OMEPRAZOLE
     Dosage: 1 DOSAGE FORM, QD
     Dates: start: 20220308, end: 20220405
  17. CALCIUM CARBONATE\SODIUM ALGINATE\SODIUM BICARBONATE [Concomitant]
     Active Substance: CALCIUM CARBONATE\SODIUM ALGINATE\SODIUM BICARBONATE
     Dosage: 10 MILLILITER, PRN
     Dates: start: 20210324
  18. PREDNISOLONE [Concomitant]
     Active Substance: PREDNISOLONE
     Dosage: TAKE 6 TABLETS (30MG) DAILY FOR 7 DAYS, THEN REDUCE BY 1 TABLET (5MG) EVERY 3 DAYS
     Dates: start: 20220325
  19. ROSUVASTATIN [Concomitant]
     Active Substance: ROSUVASTATIN
     Dosage: 1 DOSAGE FORM, QD
     Dates: start: 20220401
  20. ALBUTEROL [Concomitant]
     Active Substance: ALBUTEROL
     Dosage: 2 DOSAGE FORM, PRN(PUFFS)
     Route: 055
     Dates: start: 20210324
  21. SPIRIVA [Concomitant]
     Active Substance: TIOTROPIUM BROMIDE MONOHYDRATE
     Dosage: 2 DOSAGE FORM, QD(PUFFS)
     Route: 055
     Dates: start: 20220406

REACTIONS (4)
  - Abdominal pain upper [Recovered/Resolved]
  - Abdominal discomfort [Recovered/Resolved]
  - Urticaria [Recovered/Resolved]
  - Arthralgia [Recovered/Resolved]

NARRATIVE: CASE EVENT DATE: 20220407
